FAERS Safety Report 25363210 (Version 1)
Quarter: 2025Q2

REPORT INFORMATION
  Report Type: Spontaneous
  Country: US (occurrence: None)
  Receive Date: 20250526
  Receipt Date: 20250526
  Transmission Date: 20250716
  Serious: Yes (Disabling)
  Sender: FDA-CTU
  Company Number: None

PATIENT
  Age: 44 Year
  Sex: Female
  Weight: 112.05 kg

DRUGS (15)
  1. ARIPIPRAZOLE [Suspect]
     Active Substance: ARIPIPRAZOLE
     Indication: Depression
     Dosage: 1 TABLET DALY ORAL
     Route: 048
  2. LEVOTHYROXINE [Concomitant]
     Active Substance: LEVOTHYROXINE
  3. BUSPIRONE [Concomitant]
     Active Substance: BUSPIRONE HYDROCHLORIDE
  4. SERTRALINE [Concomitant]
     Active Substance: SERTRALINE HYDROCHLORIDE
  5. BUPROPION [Concomitant]
     Active Substance: BUPROPION
  6. FENOFIBRATE [Concomitant]
     Active Substance: FENOFIBRATE
  7. ATORVASTATIN [Concomitant]
     Active Substance: ATORVASTATIN
  8. REQUIP [Concomitant]
     Active Substance: ROPINIROLE HYDROCHLORIDE
  9. TOPAMAX [Concomitant]
     Active Substance: TOPIRAMATE
  10. HYDROXYZINE [Concomitant]
     Active Substance: HYDROXYZINE HYDROCHLORIDE
  11. JENCYCLA [Concomitant]
     Active Substance: NORETHINDRONE
  12. VITAMIN D [Concomitant]
     Active Substance: VITAMIN D NOS
  13. VITAMINS [Concomitant]
     Active Substance: VITAMINS
  14. CALCIUM [Concomitant]
     Active Substance: CALCIUM
  15. MELATONIN [Concomitant]
     Active Substance: MELATONIN

REACTIONS (1)
  - Binge eating [None]

NARRATIVE: CASE EVENT DATE: 20240501
